FAERS Safety Report 8219699-7 (Version None)
Quarter: 2012Q1

REPORT INFORMATION
  Report Type: 
  Country: None (occurrence: None)
  Receive Date: 20120319
  Receipt Date: 20120228
  Transmission Date: 20120608
  Serious: Yes (Hospitalization)
  Sender: FDA-Public Use
  Company Number: CH-ROCHE-1044225

PATIENT
  Age: 80 Year
  Sex: Male
  Weight: 89 kg

DRUGS (8)
  1. METRONIDAZOLE [Concomitant]
     Indication: CHOLECYSTITIS ACUTE
     Route: 041
  2. SINTROM [Concomitant]
     Indication: EMBOLISM
     Route: 048
  3. SALMETEROL [Concomitant]
     Indication: CHRONIC OBSTRUCTIVE PULMONARY DISEASE
     Dosage: LONG TERM
     Route: 055
  4. TORSEMIDE [Interacting]
     Indication: PRODUCT USED FOR UNKNOWN INDICATION
     Route: 048
     Dates: end: 20120206
  5. SPIRIVA [Concomitant]
     Indication: CHRONIC OBSTRUCTIVE PULMONARY DISEASE
     Route: 055
  6. GARAMYCIN [Interacting]
     Indication: ACUTE ENDOCARDITIS
     Route: 041
     Dates: start: 20120116, end: 20120129
  7. CEFTRIAXONE [Suspect]
     Indication: ACUTE ENDOCARDITIS
     Route: 041
     Dates: start: 20120116, end: 20120129
  8. FLUTICASONE FUROATE [Concomitant]
     Indication: CHRONIC OBSTRUCTIVE PULMONARY DISEASE
     Dosage: LONG TERM
     Route: 055

REACTIONS (5)
  - RENAL FAILURE ACUTE [None]
  - VESTIBULAR DISORDER [None]
  - DYSGEUSIA [None]
  - HYPOKALAEMIA [None]
  - DRUG INTERACTION [None]
